FAERS Safety Report 7976552-1 (Version None)
Quarter: 2011Q4

REPORT INFORMATION
  Report Type: 
  Country: None (occurrence: None)
  Receive Date: 20111213
  Receipt Date: 20111026
  Transmission Date: 20120403
  Serious: No
  Sender: FDA-Public Use
  Company Number: US-AMGEN-USASP2011053195

PATIENT
  Age: 55 Year
  Sex: Female

DRUGS (2)
  1. ENBREL [Suspect]
     Indication: PSORIASIS
     Dosage: 50 MG, QWK
     Dates: start: 20110712
  2. METHOTREXATE [Concomitant]
     Dosage: UNK

REACTIONS (4)
  - DYSPHONIA [None]
  - COUGH [None]
  - PSORIASIS [None]
  - PARANASAL SINUS HYPERSECRETION [None]
